FAERS Safety Report 13749491 (Version 1)
Quarter: 2017Q3

REPORT INFORMATION
  Report Type: Spontaneous
  Country: US (occurrence: US)
  Receive Date: 20170713
  Receipt Date: 20170713
  Transmission Date: 20171127
  Serious: No
  Sender: FDA-Public Use
  Company Number: None

PATIENT
  Age: 55 Year
  Sex: Female

DRUGS (1)
  1. IMATINIB 400MG SUN PHARMACEUTICAL [Suspect]
     Active Substance: IMATINIB
     Indication: CHRONIC MYELOID LEUKAEMIA
     Route: 048
     Dates: start: 20161027

REACTIONS (3)
  - Nausea [None]
  - Swelling face [None]
  - Vomiting [None]

NARRATIVE: CASE EVENT DATE: 20170412
